FAERS Safety Report 4774372-2 (Version None)
Quarter: 2005Q3

REPORT INFORMATION
  Report Type: 
  Country: None (occurrence: None)
  Receive Date: 20050914
  Receipt Date: 20050404
  Transmission Date: 20060218
  Serious: Yes (Hospitalization)
  Sender: FDA-Public Use
  Company Number: 163-20785-05040053

PATIENT
  Age: 60 Year
  Sex: Female

DRUGS (5)
  1. THALOMID [Suspect]
     Indication: MULTIPLE MYELOMA
     Dosage: 100 MG, QHS, ORAL
     Route: 048
     Dates: start: 20050322, end: 20050328
  2. VINCRISTINE [Suspect]
     Indication: MULTIPLE MYELOMA
     Dates: start: 20050330
  3. ADRIAMYCIN PFS [Suspect]
     Indication: MULTIPLE MYELOMA
  4. DEXAMETHASONE [Suspect]
     Indication: MULTIPLE MYELOMA
     Dates: start: 20050330
  5. INSULIN [Concomitant]

REACTIONS (1)
  - RENAL FAILURE ACUTE [None]
